FAERS Safety Report 23504745 (Version 2)
Quarter: 2024Q1

REPORT INFORMATION
  Report Type: Spontaneous
  Country: US (occurrence: US)
  Receive Date: 20240209
  Receipt Date: 20240314
  Transmission Date: 20240409
  Serious: Yes (Hospitalization, Other)
  Sender: FDA-Public Use
  Company Number: US-JNJFOC-20240187632

PATIENT
  Age: 42 Year
  Sex: Female

DRUGS (1)
  1. SIMPONI ARIA [Suspect]
     Active Substance: GOLIMUMAB
     Indication: Rheumatoid arthritis
     Route: 041
     Dates: start: 20231127, end: 20231227

REACTIONS (15)
  - Depression [Recovering/Resolving]
  - Dyspnoea [Unknown]
  - Panic attack [Unknown]
  - Loss of consciousness [Recovering/Resolving]
  - Rheumatoid arthritis [Unknown]
  - Chest pain [Unknown]
  - Decreased appetite [Unknown]
  - Paranoia [Unknown]
  - Hypertension [Unknown]
  - Ocular icterus [Unknown]
  - Yellow skin [Unknown]
  - Nausea [Unknown]
  - Vomiting [Unknown]
  - Impaired work ability [Unknown]
  - Diarrhoea [Recovering/Resolving]

NARRATIVE: CASE EVENT DATE: 20231231
